FAERS Safety Report 9712724 (Version 2)
Quarter: 2014Q2

REPORT INFORMATION
  Report Type: Spontaneous
  Country: US (occurrence: US)
  Receive Date: 20131126
  Receipt Date: 20140510
  Transmission Date: 20141212
  Serious: No
  Sender: FDA-Public Use
  Company Number: US-BRISTOL-MYERS SQUIBB COMPANY-19216936

PATIENT
  Sex: Female

DRUGS (1)
  1. BYDUREON [Suspect]

REACTIONS (1)
  - Injury associated with device [Unknown]
